FAERS Safety Report 8115337-2 (Version None)
Quarter: 2012Q1

REPORT INFORMATION
  Report Type: 
  Country: None (occurrence: None)
  Receive Date: 20120206
  Receipt Date: 20120206
  Transmission Date: 20120608
  Serious: Yes (Other)
  Sender: FDA-Public Use
  Company Number: None

PATIENT
  Age: 28 Year
  Sex: Female
  Weight: 138.34 kg

DRUGS (1)
  1. AVELOX [Suspect]
     Indication: SINUSITIS
     Dosage: 400.0 MG
     Route: 048
     Dates: start: 20120125, end: 20120202

REACTIONS (4)
  - ANXIETY [None]
  - FEELING JITTERY [None]
  - FEELING ABNORMAL [None]
  - PANIC ATTACK [None]
